FAERS Safety Report 16419896 (Version 1)
Quarter: 2019Q2

REPORT INFORMATION
  Report Type: Spontaneous
  Country: GB (occurrence: GB)
  Receive Date: 20190612
  Receipt Date: 20190612
  Transmission Date: 20190711
  Serious: Yes (Other)
  Sender: FDA-Public Use
  Company Number: GB-ASTRAZENECA-2019SE82829

PATIENT
  Age: 78 Year
  Sex: Female
  Weight: 61 kg

DRUGS (7)
  1. OMEPRAZOLE. [Suspect]
     Active Substance: OMEPRAZOLE
     Indication: DYSPEPSIA
     Dosage: 20.0MG UNKNOWN
     Route: 048
     Dates: start: 20171109, end: 20171110
  2. GAVISCON ADVANCE [Concomitant]
     Active Substance: POTASSIUM BICARBONATE\SODIUM ALGINATE
     Dosage: WHEN REQUIRED.
     Route: 065
     Dates: start: 20171110
  3. DORZOLAMIDE [Concomitant]
     Active Substance: DORZOLAMIDE
     Dosage: ONE IN EACH EYE, 4 GTT DAILY
     Route: 065
     Dates: start: 20170703
  4. TIMOLOL. [Concomitant]
     Active Substance: TIMOLOL
     Dosage: ONE DROP EACH EYE, 4 GTT DAILY
     Route: 065
     Dates: start: 20170703
  5. BIMATOPROST. [Concomitant]
     Active Substance: BIMATOPROST
     Dosage: INTO AFFECTED EYE IN THE EVENING. 100MCG/ML, 1 GTT DAILY
     Route: 065
     Dates: start: 20170703
  6. LEVOTHYROXINE SODIUM. [Concomitant]
     Active Substance: LEVOTHYROXINE SODIUM
     Dosage: 25UG/INHAL DAILY
     Route: 048
     Dates: start: 20170703
  7. RANITIDINE. [Concomitant]
     Active Substance: RANITIDINE
     Route: 065
     Dates: start: 20171110

REACTIONS (1)
  - Mouth ulceration [Recovering/Resolving]

NARRATIVE: CASE EVENT DATE: 20171109
